FAERS Safety Report 5871431-8 (Version None)
Quarter: 2008Q3

REPORT INFORMATION
  Report Type: 
  Country: None (occurrence: None)
  Receive Date: 20080905
  Receipt Date: 20080123
  Transmission Date: 20090109
  Serious: No
  Sender: FDA-Public Use
  Company Number: A0704907A

PATIENT
  Age: 37 Year
  Sex: Female

DRUGS (3)
  1. REQUIP [Suspect]
     Indication: RESTLESS LEGS SYNDROME
     Dosage: 25MG PER DAY
     Route: 048
  2. NASONEX [Concomitant]
  3. AMOXIL [Concomitant]

REACTIONS (2)
  - DIZZINESS [None]
  - PALPITATIONS [None]
